FAERS Safety Report 4423392-6 (Version None)
Quarter: 2004Q3

REPORT INFORMATION
  Report Type: 
  Country: None (occurrence: None)
  Receive Date: 20040806
  Receipt Date: 20040727
  Transmission Date: 20050211
  Serious: Yes (Hospitalization)
  Sender: FDA-Public Use
  Company Number: 2004044613

PATIENT
  Age: 49 Year
  Sex: Female

DRUGS (6)
  1. LIPITOR [Suspect]
     Indication: DYSLIPIDAEMIA
     Dosage: 10 MG (10 MG 1 IN 1 D), ORAL
     Route: 048
     Dates: start: 20040601
  2. INSULIN [Concomitant]
  3. METFORMIN HCL [Concomitant]
  4. RAMIPRIL [Concomitant]
  5. HYDROCHLOROTHIAZIDE [Concomitant]
  6. BUFFERIN [Concomitant]

REACTIONS (6)
  - BURNING SENSATION [None]
  - CHEST PAIN [None]
  - GLAUCOMA [None]
  - POSTOPERATIVE INFECTION [None]
  - URINARY RETENTION [None]
  - VASCULAR BYPASS GRAFT [None]
